FAERS Safety Report 19392816 (Version 2)
Quarter: 2021Q2

REPORT INFORMATION
  Report Type: Report from Study
  Country: None (occurrence: US)
  Receive Date: 20210609
  Receipt Date: 20210615
  Transmission Date: 20210717
  Serious: Yes (Other)
  Sender: FDA-Public Use
  Company Number: US-ABBVIE-21K-163-3936155-00

PATIENT
  Sex: Female
  Weight: 92.16 kg

DRUGS (5)
  1. HUMIRA [Suspect]
     Active Substance: ADALIMUMAB
     Indication: CROHN^S DISEASE
     Dosage: DAY1
     Route: 058
     Dates: start: 20200609, end: 20200609
  2. HUMIRA [Suspect]
     Active Substance: ADALIMUMAB
     Dosage: DAY 15
     Route: 058
     Dates: start: 20200623, end: 20200623
  3. HUMIRA [Suspect]
     Active Substance: ADALIMUMAB
     Route: 058
     Dates: start: 20210212
  4. COVID?19 VACCINE [Concomitant]
     Indication: COVID-19 IMMUNISATION
     Route: 030
     Dates: start: 2021, end: 2021
  5. HUMIRA [Suspect]
     Active Substance: ADALIMUMAB
     Dosage: DAY 29
     Route: 058
     Dates: start: 20200707, end: 202101

REACTIONS (7)
  - Musculoskeletal disorder [Not Recovered/Not Resolved]
  - Joint range of motion decreased [Unknown]
  - Cyst [Unknown]
  - Drug metabolite level high [Unknown]
  - Therapeutic response shortened [Unknown]
  - Benign neoplasm [Unknown]
  - Crohn^s disease [Unknown]
